FAERS Safety Report 23967531 (Version 5)
Quarter: 2025Q1

REPORT INFORMATION
  Report Type: Spontaneous
  Country: DE (occurrence: DE)
  Receive Date: 20240612
  Receipt Date: 20250113
  Transmission Date: 20250409
  Serious: Yes (Life-Threatening, Hospitalization, Other)
  Sender: MSN LABORATORIES PRIVATE LIMITED
  Company Number: DE-MSNLABS-2024MSNSPO01208

PATIENT

DRUGS (15)
  1. PREGABALIN [Suspect]
     Active Substance: PREGABALIN
     Indication: Neuralgia
     Dosage: 75 MG TWO TIMES A DAY
     Route: 048
     Dates: start: 20230930, end: 20231215
  2. PREGABALIN [Suspect]
     Active Substance: PREGABALIN
     Indication: Neuropathy peripheral
  3. PREGABALIN [Suspect]
     Active Substance: PREGABALIN
     Indication: Product used for unknown indication
     Dosage: TAPERING THERAPY
     Route: 048
     Dates: start: 20231206, end: 20231226
  4. PREGABALIN [Suspect]
     Active Substance: PREGABALIN
     Indication: Polyneuropathy
     Route: 048
  5. PREGABALIN [Suspect]
     Active Substance: PREGABALIN
     Indication: Neuropathy peripheral
     Route: 065
     Dates: start: 20240311, end: 20240506
  6. PREGABALIN [Suspect]
     Active Substance: PREGABALIN
     Indication: Burning sensation
     Route: 048
     Dates: start: 20231207, end: 20240131
  7. PREGABALIN [Suspect]
     Active Substance: PREGABALIN
     Indication: Polyneuropathy
     Route: 048
     Dates: start: 20231216
  8. PREGABALIN [Suspect]
     Active Substance: PREGABALIN
     Route: 065
     Dates: start: 20240131
  9. PREGABALIN [Suspect]
     Active Substance: PREGABALIN
     Indication: Burning sensation
     Route: 048
     Dates: start: 20231024, end: 20231207
  10. PREGABALIN [Suspect]
     Active Substance: PREGABALIN
     Indication: Polyneuropathy
     Route: 065
     Dates: start: 20240213, end: 20240311
  11. RAMIPRIL [Concomitant]
     Active Substance: RAMIPRIL
     Route: 065
  12. LEVOTHYROXINE SODIUM\POTASSIUM IODIDE [Concomitant]
     Active Substance: LEVOTHYROXINE SODIUM\POTASSIUM IODIDE
     Route: 065
  13. PYRIDOXINE HYDROCHLORIDE [Concomitant]
     Active Substance: PYRIDOXINE HYDROCHLORIDE
     Dosage: ONCE A DAY
     Route: 048
  14. EUTHYROX [Concomitant]
     Active Substance: LEVOTHYROXINE SODIUM
     Indication: Product used for unknown indication
     Dosage: 1-0-0
     Route: 065
     Dates: start: 20240203
  15. CANDESARTAN [Concomitant]
     Active Substance: CANDESARTAN
     Indication: Product used for unknown indication
     Dosage: 8 MG ONCE A DAY
     Route: 065
     Dates: start: 20240207

REACTIONS (98)
  - Seizure [Recovered/Resolved with Sequelae]
  - Altered state of consciousness [Recovered/Resolved with Sequelae]
  - Drug withdrawal convulsions [Recovered/Resolved]
  - Panic attack [Recovered/Resolved with Sequelae]
  - Restlessness [Recovering/Resolving]
  - Loss of consciousness [Recovering/Resolving]
  - Withdrawal syndrome [Recovering/Resolving]
  - Syncope [Recovered/Resolved with Sequelae]
  - Tremor [Recovered/Resolved with Sequelae]
  - Myoclonus [Recovered/Resolved with Sequelae]
  - Stupor [Recovered/Resolved with Sequelae]
  - Dizziness [Recovered/Resolved with Sequelae]
  - Muscle spasms [Recovered/Resolved with Sequelae]
  - Contusion [Recovered/Resolved]
  - Musculoskeletal stiffness [Recovering/Resolving]
  - Fall [Recovering/Resolving]
  - Skin discolouration [Recovered/Resolved]
  - Palpitations [Recovering/Resolving]
  - Tension [Recovering/Resolving]
  - Respiratory rate increased [Recovering/Resolving]
  - Limb injury [Recovering/Resolving]
  - Mobility decreased [Recovering/Resolving]
  - Bone contusion [Not Recovered/Not Resolved]
  - Haematoma [Recovering/Resolving]
  - Gait disturbance [Recovering/Resolving]
  - Muscular weakness [Recovering/Resolving]
  - Pain in extremity [Recovered/Resolved]
  - Thinking abnormal [Unknown]
  - Feeling cold [Not Recovered/Not Resolved]
  - Hepatic enzyme increased [Unknown]
  - Insomnia [Recovering/Resolving]
  - Drug ineffective [Unknown]
  - Neck pain [Recovering/Resolving]
  - Depressed mood [Unknown]
  - Asthenia [Recovering/Resolving]
  - Apathy [Recovering/Resolving]
  - Pain [Recovering/Resolving]
  - Myalgia [Recovering/Resolving]
  - Somnolence [Unknown]
  - Peripheral swelling [Recovered/Resolved]
  - Disturbance in attention [Unknown]
  - Urinary incontinence [Recovered/Resolved]
  - Fatigue [Recovering/Resolving]
  - Muscle spasms [None]
  - Muscle spasms [None]
  - Syncope [None]
  - Cyanosis [None]
  - Tremor [None]
  - Muscular weakness [None]
  - Injury [None]
  - Palpitations [None]
  - Withdrawal syndrome [None]
  - Loss of consciousness [None]
  - Apathy [None]
  - Hyperventilation [None]
  - Limb injury [None]
  - Asthenia [None]
  - Bone contusion [None]
  - Haematoma [None]
  - Thinking abnormal [None]
  - Aggression [None]
  - Depression [None]
  - Feeling abnormal [None]
  - Disturbance in attention [None]
  - Hepatic enzyme increased [None]
  - Myoclonus [None]
  - Drug ineffective [None]
  - Fatigue [None]
  - Insomnia [None]
  - Neck pain [None]
  - Stupor [None]
  - Muscle spasms [None]
  - Pain in extremity [None]
  - SARS-CoV-2 test positive [None]
  - SARS-CoV-2 test negative [None]
  - Thinking abnormal [None]
  - Feeling cold [None]
  - Depressed mood [None]
  - Somnolence [None]
  - Drug hypersensitivity [None]
  - Abdominal hernia [None]
  - Oesophageal wall hypertrophy [None]
  - Asthenia [None]
  - Dizziness [None]
  - Meningioma [None]
  - Diverticulum intestinal [None]
  - Gastrooesophageal reflux disease [None]
  - Hyperlipidaemia [None]
  - Aortic arteriosclerosis [None]
  - Platelet count increased [None]
  - Glomerular filtration rate decreased [None]
  - Blood cholesterol increased [None]
  - Low density lipoprotein increased [None]
  - High density lipoprotein increased [None]
  - Gait disturbance [None]
  - Pain [None]
  - Peripheral swelling [None]
  - Skin discolouration [None]

NARRATIVE: CASE EVENT DATE: 20231224
